FAERS Safety Report 5663678-0 (Version None)
Quarter: 2008Q1

REPORT INFORMATION
  Report Type: 
  Country: None (occurrence: None)
  Receive Date: 20080307
  Receipt Date: 20080222
  Transmission Date: 20080703
  Serious: Yes (Other)
  Sender: FDA-Public Use
  Company Number: 2008S1003039

PATIENT
  Age: 44 Year
  Sex: Female

DRUGS (2)
  1. LORAZEPAM [Suspect]
     Indication: DRUG USE FOR UNKNOWN INDICATION
     Dosage: 20 MG; ORAL
     Route: 048
     Dates: start: 20080221, end: 20080221
  2. ETHANOL (ETHANOL) [Suspect]
     Indication: DRUG USE FOR UNKNOWN INDICATION
     Dosage: ORAL
     Route: 048
     Dates: start: 20080221, end: 20080221

REACTIONS (2)
  - OVERDOSE [None]
  - SOMNOLENCE [None]
